FAERS Safety Report 12271912 (Version 1)
Quarter: 2016Q2

REPORT INFORMATION
  Report Type: Spontaneous
  Country: US (occurrence: US)
  Receive Date: 20160415
  Receipt Date: 20160415
  Transmission Date: 20160815
  Serious: Yes (Hospitalization)
  Sender: FDA-Public Use
  Company Number: US-DRREDDYS-USA/USA/16/0078630

PATIENT
  Age: 10 Year
  Sex: Male

DRUGS (2)
  1. CALCIUM [Suspect]
     Active Substance: CALCIUM
     Indication: CHRONIC RECURRENT MULTIFOCAL OSTEOMYELITIS
     Route: 065
  2. ZOLEDRONIC ACID. [Suspect]
     Active Substance: ZOLEDRONIC ACID
     Indication: CHRONIC RECURRENT MULTIFOCAL OSTEOMYELITIS
     Route: 065

REACTIONS (5)
  - Diarrhoea [Unknown]
  - Hypocalcaemia [Unknown]
  - Electrocardiogram QT prolonged [Recovered/Resolved]
  - Hypophosphataemia [Unknown]
  - Vomiting [Unknown]
